FAERS Safety Report 9407964 (Version 3)
Quarter: 2013Q3

REPORT INFORMATION
  Report Type: Spontaneous
  Country: US (occurrence: US)
  Receive Date: 20130718
  Receipt Date: 20130926
  Transmission Date: 20140515
  Serious: No
  Sender: FDA-Public Use
  Company Number: US-TEVA-419832USA

PATIENT
  Age: 30 Year
  Sex: Female
  Weight: 82.63 kg

DRUGS (1)
  1. PARAGARD 380A [Suspect]
     Indication: CONTRACEPTION
     Route: 015

REACTIONS (1)
  - Medical device complication [Not Recovered/Not Resolved]
